FAERS Safety Report 16487728 (Version 1)
Quarter: 2019Q3

REPORT INFORMATION
  Report Type: Spontaneous
  Country: US (occurrence: US)
  Receive Date: 20190626
  Receipt Date: 20190626
  Transmission Date: 20191004
  Serious: Yes (Life-Threatening, Hospitalization, Disabling)
  Sender: FDA-Public Use
  Company Number: None

PATIENT
  Age: 78 Year
  Sex: Male
  Weight: 65.25 kg

DRUGS (1)
  1. REPATHA [Suspect]
     Active Substance: EVOLOCUMAB
     Indication: BLOOD CHOLESTEROL
     Dosage: ?          OTHER FREQUENCY:1 TIME A WEEK;?
     Route: 030

REACTIONS (6)
  - Fall [None]
  - Middle insomnia [None]
  - Haemorrhage [None]
  - Head injury [None]
  - Femur fracture [None]
  - Hip fracture [None]

NARRATIVE: CASE EVENT DATE: 20180821
